FAERS Safety Report 8593431-X (Version None)
Quarter: 2012Q3

REPORT INFORMATION
  Report Type: 
  Country: None (occurrence: None)
  Receive Date: 20120814
  Receipt Date: 20120809
  Transmission Date: 20120928
  Serious: Yes (Hospitalization)
  Sender: FDA-Public Use
  Company Number: US-GILEAD-2012-0057676

PATIENT
  Sex: Female

DRUGS (3)
  1. REMODULIN [Suspect]
     Indication: COR PULMONALE CHRONIC
     Dosage: UNK
     Dates: start: 20120203
  2. TRACLEER [Concomitant]
  3. LETAIRIS [Suspect]
     Indication: PULMONARY ARTERIAL HYPERTENSION
     Dosage: 5 MG, UNK
     Route: 048
     Dates: start: 20120216

REACTIONS (1)
  - INFECTION [None]
